FAERS Safety Report 21144238 (Version 1)
Quarter: 2022Q3

REPORT INFORMATION
  Report Type: Spontaneous
  Country: US (occurrence: None)
  Receive Date: 20220728
  Receipt Date: 20220728
  Transmission Date: 20221026
  Serious: Yes (Other)
  Sender: FDA-Public Use
  Company Number: None

PATIENT
  Sex: Male

DRUGS (2)
  1. VILAZODONE [Suspect]
     Active Substance: VILAZODONE
  2. VILAZODONE [Suspect]
     Active Substance: VILAZODONE
     Indication: Product used for unknown indication

REACTIONS (2)
  - Formication [None]
  - Herpes zoster [None]
